FAERS Safety Report 6407659-8 (Version None)
Quarter: 2009Q4

REPORT INFORMATION
  Report Type: 
  Country: None (occurrence: None)
  Receive Date: 20091020
  Receipt Date: 20091012
  Transmission Date: 20100525
  Serious: Yes (Hospitalization)
  Sender: FDA-Public Use
  Company Number: PHHO2009BR11912

PATIENT
  Sex: Male

DRUGS (5)
  1. MYCOPHENOLATE MOFETIL [Suspect]
     Indication: RENAL TRANSPLANT
     Dosage: UNK
     Dates: start: 20070810, end: 20090919
  2. MYCOPHENOLATE MOFETIL [Suspect]
     Dosage: NO TREATMENT
     Dates: start: 20090920, end: 20090922
  3. MYCOPHENOLATE MOFETIL [Suspect]
     Dosage: UNK
     Dates: start: 20090923
  4. BELATACEPT [Suspect]
     Indication: RENAL TRANSPLANT
     Dosage: 520MG
     Route: 042
     Dates: start: 20080110
  5. PREDNISONE TAB [Concomitant]
     Indication: RENAL TRANSPLANT
     Dosage: UNK
     Dates: start: 20060711

REACTIONS (6)
  - DIZZINESS [None]
  - ERYSIPELAS [None]
  - HEADACHE [None]
  - NAUSEA [None]
  - PYREXIA [None]
  - RESPIRATORY TRACT INFECTION [None]
